FAERS Safety Report 12556488 (Version 1)
Quarter: 2016Q3

REPORT INFORMATION
  Report Type: Spontaneous
  Country: CA (occurrence: CA)
  Receive Date: 20160714
  Receipt Date: 20160714
  Transmission Date: 20161109
  Serious: Yes (Other)
  Sender: FDA-Public Use
  Company Number: CA-BAYER-2016-136856

PATIENT
  Age: 39 Year
  Sex: Female

DRUGS (4)
  1. ACETYLSALICYLIC ACID({=100 MG) [Suspect]
     Active Substance: ASPIRIN
     Indication: ANTIPHOSPHOLIPID SYNDROME
     Dosage: 81 MG, QD
  2. PROGESTERONE. [Concomitant]
     Active Substance: PROGESTERONE
     Indication: HABITUAL ABORTION
     Dosage: 100 MG, QD
     Route: 030
  3. SALBUTAMOL [Concomitant]
     Active Substance: ALBUTEROL
     Indication: AMNIORRHOEA
     Dosage: 1 MG, EVERY 4 HOURS
     Route: 048
  4. FRAGMIN [Concomitant]
     Active Substance: DALTEPARIN SODIUM
     Indication: ANTIPHOSPHOLIPID SYNDROME
     Dosage: 5500 UNITS TWICE DAILY
     Route: 058

REACTIONS (5)
  - Maternal exposure during pregnancy [None]
  - Palmar erythema [Recovered/Resolved]
  - Off label use [None]
  - Premature delivery [None]
  - Amniorrhoea [None]
